FAERS Safety Report 6027418-8 (Version None)
Quarter: 2009Q1

REPORT INFORMATION
  Report Type: 
  Country: None (occurrence: None)
  Receive Date: 20090105
  Receipt Date: 20081231
  Transmission Date: 20090719
  Serious: No
  Sender: FDA-Public Use
  Company Number: US-JNJFOC-20090100158

PATIENT
  Sex: Female
  Weight: 49.9 kg

DRUGS (6)
  1. FENTANYL TRANSDERMAL SYSTEM [Suspect]
     Indication: FIBROMYALGIA
     Route: 062
  2. UNSPECIFIED MEDICATIONS [Concomitant]
     Indication: DEPRESSION
     Route: 048
  3. METFORMIN HCL [Concomitant]
     Indication: DIABETES MELLITUS
     Route: 048
  4. PREMARIN [Concomitant]
     Indication: HORMONE LEVEL ABNORMAL
     Route: 048
  5. ENDOCET [Concomitant]
     Indication: BREAKTHROUGH PAIN
     Dosage: DOSE: 10/325 MG, AS NEEDED
     Route: 048
  6. ALDERONATE [Concomitant]
     Indication: BONE DISORDER
     Route: 048

REACTIONS (3)
  - DEVICE LEAKAGE [None]
  - HYPERSOMNIA [None]
  - INCORRECT DRUG ADMINISTRATION DURATION [None]
